FAERS Safety Report 8571329-0 (Version None)
Quarter: 2012Q3

REPORT INFORMATION
  Report Type: 
  Country: None (occurrence: None)
  Receive Date: 20120806
  Receipt Date: 20120723
  Transmission Date: 20120928
  Serious: Yes (Hospitalization, Other)
  Sender: FDA-Public Use
  Company Number: JP-SHIRE-SPV1-2010-00368

PATIENT
  Sex: Male

DRUGS (17)
  1. LANTHANUM CARBONATE [Suspect]
     Indication: HYPERPHOSPHATAEMIA
     Dosage: 750 MG, UNKNOWN, TOTAL DAILY DOSE, (IMMEDIATELY AFTER MEALS)
     Route: 048
     Dates: start: 20090612, end: 20100425
  2. OXAROL [Concomitant]
     Dosage: 12.5 ?G, 1X/WEEK
     Route: 042
     Dates: start: 20100717, end: 20100808
  3. OXAROL [Concomitant]
     Dosage: 7.5 ?G, OTHER(DURATION: 6 WEEKS, 18 WEEKS, 1WEEK 2 DAYS, 2 WEEKS 3 DAYS, NI, 3 WEEKS, 25 WEEKS 1 DAY
     Route: 042
     Dates: start: 20120201
  4. OXAROL [Concomitant]
     Dosage: 15 ?G, 1X/WEEK
     Route: 042
     Dates: start: 20091026, end: 20100228
  5. ROCALTROL [Concomitant]
     Indication: PRODUCT USED FOR UNKNOWN INDICATION
     Dosage: .25 UG, UNK
     Route: 048
     Dates: end: 20090914
  6. OXAROL [Concomitant]
     Dosage: 5 ?G, 1X/WEEK
     Route: 042
     Dates: start: 20110601, end: 20120131
  7. LANTHANUM CARBONATE [Suspect]
     Dosage: 1500 MG, UNKNOWN
     Route: 048
     Dates: start: 20100426
  8. CALCIUM CARBONATE [Concomitant]
     Indication: HYPERPHOSPHATAEMIA
     Dosage: 3000 MG, UNKNOWN
     Route: 048
     Dates: start: 20090807
  9. OXAROL [Concomitant]
     Indication: PRODUCT USED FOR UNKNOWN INDICATION
     Dosage: 10 ?G, 1X/WEEK
     Route: 042
     Dates: start: 20090914, end: 20091025
  10. OXAROL [Concomitant]
     Dosage: 15 ?G, 1X/WEEK
     Route: 042
     Dates: start: 20100315, end: 20100331
  11. EPOGIN [Concomitant]
     Indication: PRODUCT USED FOR UNKNOWN INDICATION
     Dosage: 7500 IU, UNK
     Route: 042
  12. OXAROL [Concomitant]
     Dosage: 10 ?G, 1X/WEEK
     Route: 042
     Dates: start: 20100809, end: 20110131
  13. ASPIRIN [Concomitant]
     Indication: PROPHYLAXIS
     Dosage: 100 MG, UNKNOWN
     Route: 048
  14. AMLODIPINE [Concomitant]
     Indication: PRODUCT USED FOR UNKNOWN INDICATION
     Dosage: 5 MG, UNKNOWN
     Route: 048
  15. OXAROL [Concomitant]
     Dosage: 15 ?G, 1X/WEEK
     Route: 042
     Dates: start: 20100401
  16. OXAROL [Concomitant]
     Dosage: 15 ?G, 1X/WEEK
     Route: 042
     Dates: start: 20100301, end: 20100312
  17. OXAROL [Concomitant]
     Dosage: 7.5 ?G, 1X/WEEK
     Route: 042
     Dates: start: 20110201, end: 20110531

REACTIONS (5)
  - GASTRIC ULCER [None]
  - SHUNT MALFUNCTION [None]
  - LARGE INTESTINAL ULCER [None]
  - ARTHRALGIA [None]
  - ANGINA PECTORIS [None]
